FAERS Safety Report 9492320 (Version 1)
Quarter: 2013Q3

REPORT INFORMATION
  Report Type: Spontaneous
  Country: GB (occurrence: GB)
  Receive Date: 20130830
  Receipt Date: 20130830
  Transmission Date: 20140515
  Serious: Yes (Other)
  Sender: FDA-Public Use
  Company Number: PHHY2013GB092741

PATIENT
  Age: 51 Year
  Sex: Female
  Weight: 108.86 kg

DRUGS (13)
  1. VENLAFAXINE [Suspect]
     Indication: DEPRESSION
     Dosage: 150 MG, UNK
     Route: 048
  2. VENLAFAXINE [Suspect]
     Dosage: 75 MG, UNK
     Route: 048
  3. BISOPROLOL [Concomitant]
  4. RAMIPRIL [Concomitant]
  5. SIMVASTATIN [Concomitant]
  6. LANSOPRAZOLE [Concomitant]
  7. SERTRALINE [Concomitant]
  8. SOLIFENACIN [Concomitant]
  9. AMLODIPINE [Concomitant]
  10. ASPIRIN [Concomitant]
  11. GLUCOSAMINE + CHONDROITIN [Concomitant]
  12. CO-CODAMOL [Concomitant]
  13. TRAXAM [Concomitant]

REACTIONS (11)
  - Depression [Not Recovered/Not Resolved]
  - Abdominal discomfort [Not Recovered/Not Resolved]
  - Palpitations [Not Recovered/Not Resolved]
  - Tinnitus [Unknown]
  - Visual impairment [Not Recovered/Not Resolved]
  - Paraesthesia [Not Recovered/Not Resolved]
  - Dizziness [Not Recovered/Not Resolved]
  - Nausea [Not Recovered/Not Resolved]
  - Insomnia [Not Recovered/Not Resolved]
  - Confusional state [Unknown]
  - Withdrawal syndrome [Not Recovered/Not Resolved]
